FAERS Safety Report 8573807-7 (Version None)
Quarter: 2012Q3

REPORT INFORMATION
  Report Type: 
  Country: None (occurrence: None)
  Receive Date: 20120806
  Receipt Date: 20110621
  Transmission Date: 20120928
  Serious: No
  Sender: FDA-Public Use
  Company Number: US-GLAXOSMITHKLINE-A0932222A

PATIENT
  Age: 71 Year
  Sex: Female

DRUGS (3)
  1. FLUTICASONE PROPIONATE [Suspect]
     Indication: OBSTRUCTIVE AIRWAYS DISORDER
     Dosage: 1PUFF TWICE PER DAY
     Route: 055
  2. FLUTICASONE PROPIONATE [Suspect]
     Dosage: 2PUFF TWICE PER DAY
     Route: 055
     Dates: start: 20110518
  3. UNKNOWN MEDICATION [Concomitant]

REACTIONS (2)
  - DYSGEUSIA [None]
  - THERAPEUTIC RESPONSE DECREASED [None]
